FAERS Safety Report 8548089-2 (Version None)
Quarter: 2012Q3

REPORT INFORMATION
  Report Type: 
  Country: None (occurrence: None)
  Receive Date: 20120730
  Receipt Date: 20120717
  Transmission Date: 20120928
  Serious: Yes (Death, Hospitalization)
  Sender: FDA-Public Use
  Company Number: TR-AMGEN-TURSP2012026128

PATIENT
  Age: 54 Year
  Sex: Male

DRUGS (1)
  1. ENBREL [Suspect]
     Indication: ANKYLOSING SPONDYLITIS
     Dosage: 50 MG, WEEKLY
     Route: 058
     Dates: start: 20110504, end: 20120405

REACTIONS (8)
  - DYSPNOEA [None]
  - NUTRITIONAL CONDITION ABNORMAL [None]
  - OESOPHAGEAL DISORDER [None]
  - SWELLING [None]
  - TRACHEAL DISORDER [None]
  - CONTUSION [None]
  - NECK DEFORMITY [None]
  - DEATH [None]
